FAERS Safety Report 9460657 (Version 1)
Quarter: 2013Q3

REPORT INFORMATION
  Report Type: Spontaneous
  Country: DE (occurrence: DE)
  Receive Date: 20130815
  Receipt Date: 20130815
  Transmission Date: 20140515
  Serious: Yes (Hospitalization)
  Sender: FDA-Public Use
  Company Number: DE-ELI_LILLY_AND_COMPANY-DE201308002736

PATIENT
  Age: 59 Year
  Sex: Male

DRUGS (5)
  1. HUMALOG LISPRO [Suspect]
     Indication: TYPE 2 DIABETES MELLITUS
     Dosage: UNK
     Route: 058
     Dates: start: 2000
  2. TAPENTADOL [Concomitant]
     Dosage: UNK
  3. CYMBALTA [Concomitant]
     Dosage: UNK
  4. LYRICA [Concomitant]
     Dosage: UNK
  5. A.A.S. [Concomitant]
     Dosage: UNK

REACTIONS (2)
  - Diabetic foot [Recovered/Resolved]
  - Limb injury [Recovered/Resolved]
